FAERS Safety Report 18618711 (Version 1)
Quarter: 2020Q4

REPORT INFORMATION
  Report Type: Spontaneous
  Country: US (occurrence: US)
  Receive Date: 20201215
  Receipt Date: 20201215
  Transmission Date: 20210114
  Serious: No
  Sender: FDA-Public Use
  Company Number: None

PATIENT
  Age: 73 Year
  Sex: Female
  Weight: 91.8 kg

DRUGS (19)
  1. FEMARA 2.5 MG, ORAL [Concomitant]
  2. EXFORGE 10-160 MG, ORAL [Concomitant]
  3. TESSALON PERLES 100 MG, ORAL [Concomitant]
  4. TRAMADOL 50 MG, ORAL [Concomitant]
  5. LIPITOR 40 MG, ORAL [Concomitant]
  6. LIVALO 2 MG, ORAL [Concomitant]
  7. AUGMENTIN 875-125 MG, ORAL [Concomitant]
  8. SOMA 350 MG, ORAL [Concomitant]
  9. IBRANCE [Suspect]
     Active Substance: PALBOCICLIB
     Indication: BREAST CANCER FEMALE
     Route: 048
     Dates: start: 20200428
  10. LEXAPRO 20 MG, ORAL [Concomitant]
  11. OMEPRAZOLE 40 MG, ORAL [Concomitant]
  12. VITAMIN D, ORAL [Concomitant]
  13. PERCOCET 10-325 MG, ORAL [Concomitant]
  14. LEVAQUIN 500 MG, ORAL [Concomitant]
  15. NEXIUM 40 MG, ORAL [Concomitant]
  16. SYMBICORT 80-4.5 MCG, INHALATION [Concomitant]
  17. HCTZ 12.5 MG, ORAL [Concomitant]
  18. HEMAX 150-1 MG, ORAL [Concomitant]
  19. MEDROL 4 MG, ORAL [Concomitant]

REACTIONS (3)
  - Hyperhidrosis [None]
  - Contusion [None]
  - Diarrhoea [None]

NARRATIVE: CASE EVENT DATE: 20201215
